FAERS Safety Report 4991300-5 (Version None)
Quarter: 2006Q2

REPORT INFORMATION
  Report Type: 
  Country: None (occurrence: None)
  Receive Date: 20060428
  Receipt Date: 20060419
  Transmission Date: 20061013
  Serious: Yes (Hospitalization)
  Sender: FDA-Public Use
  Company Number: 2006BI005791

PATIENT
  Age: 46 Year
  Sex: Female
  Weight: 85.2762 kg

DRUGS (7)
  1. AVONEX [Suspect]
     Indication: MULTIPLE SCLEROSIS
     Dosage: 30 UG; QW IM;  30 UG; QW; IM
     Route: 030
     Dates: start: 20050201, end: 20050501
  2. AVONEX [Suspect]
     Indication: MULTIPLE SCLEROSIS
     Dosage: 30 UG; QW IM;  30 UG; QW; IM
     Route: 030
     Dates: start: 20051001
  3. SKELAXIN [Concomitant]
  4. ACIPHEX [Concomitant]
  5. BACLOFEN [Concomitant]
  6. COUMADIN [Concomitant]
  7. PERCOCET [Concomitant]

REACTIONS (5)
  - CONDITION AGGRAVATED [None]
  - GASTRIC HAEMORRHAGE [None]
  - MULTIPLE SCLEROSIS [None]
  - NAUSEA [None]
  - PANCREATITIS [None]
